FAERS Safety Report 19391830 (Version 1)
Quarter: 2021Q2

REPORT INFORMATION
  Report Type: Spontaneous
  Country: AT (occurrence: AT)
  Receive Date: 20210609
  Receipt Date: 20210609
  Transmission Date: 20210717
  Serious: Yes (Other)
  Sender: FDA-Public Use
  Company Number: AT-CELLTRION INC.-2021AT007391

PATIENT

DRUGS (4)
  1. EMICIZUMAB. [Suspect]
     Active Substance: EMICIZUMAB
     Indication: ACQUIRED HAEMOPHILIA
     Dosage: 3 MG/KG WEEKLY FOR 2?3 DOSES
     Route: 058
  2. EMICIZUMAB. [Suspect]
     Active Substance: EMICIZUMAB
     Dosage: 1.5 MG/KG EVERY 3 WEEKS
     Route: 058
  3. NOVOSEVEN [Suspect]
     Active Substance: COAGULATION FACTOR VIIA RECOMBINANT HUMAN
     Indication: HAEMOSTASIS
     Dosage: 90 MCG/KG
  4. RITUXIMAB (UNKNOWN) [Suspect]
     Active Substance: RITUXIMAB
     Indication: IMMUNOSUPPRESSION
     Dosage: MEDIAN 4 DOSES (2?5) AND 2500 MG (1000?5000)

REACTIONS (3)
  - Off label use [Unknown]
  - Wound infection [Unknown]
  - Cerebrovascular accident [Recovered/Resolved]
